FAERS Safety Report 23794317 (Version 1)
Quarter: 2024Q2

REPORT INFORMATION
  Report Type: Spontaneous
  Country: SI (occurrence: SI)
  Receive Date: 20240429
  Receipt Date: 20240429
  Transmission Date: 20240716
  Serious: Yes (Hospitalization, Other)
  Sender: FDA-Public Use
  Company Number: SI-ARGENX-2024-ARGX-SI002774

PATIENT

DRUGS (1)
  1. VYVGART [Suspect]
     Active Substance: EFGARTIGIMOD ALFA-FCAB
     Indication: Product used for unknown indication
     Dosage: 10 MG/KG, STRENGTH: 10MG/ML, VIAL 20 ML
     Route: 065

REACTIONS (1)
  - Respiratory syncytial virus bronchiolitis [Unknown]
